FAERS Safety Report 7642213-1 (Version None)
Quarter: 2011Q3

REPORT INFORMATION
  Report Type: 
  Country: None (occurrence: None)
  Receive Date: 20110728
  Receipt Date: 20110719
  Transmission Date: 20111222
  Serious: Yes (Hospitalization)
  Sender: FDA-Public Use
  Company Number: PHHY2011US64738

PATIENT
  Age: 34 Year
  Sex: Female

DRUGS (4)
  1. ADVIL LIQUI-GELS [Concomitant]
     Indication: HEADACHE
  2. COUMADIN [Concomitant]
  3. FOLIC ACID [Concomitant]
  4. EXJADE [Suspect]
     Indication: TRANSFUSION
     Dosage: 250 MG, TID
     Route: 048

REACTIONS (5)
  - ABDOMINAL PAIN UPPER [None]
  - CEREBROVASCULAR ACCIDENT [None]
  - DYSURIA [None]
  - PAIN IN EXTREMITY [None]
  - CHROMATURIA [None]
